FAERS Safety Report 8902516 (Version 2)
Quarter: 2012Q4

REPORT INFORMATION
  Report Type: 
  Country: US (occurrence: US)
  Receive Date: 20121112
  Receipt Date: 20121129
  Transmission Date: 20130627
  Serious: Yes (Death, Hospitalization)
  Sender: FDA-Public Use
  Company Number: US-ELI_LILLY_AND_COMPANY-US201211000666

PATIENT
  Age: 88 Year
  Sex: Female
  Weight: 33.47 kg

DRUGS (15)
  1. FORTEO [Suspect]
     Indication: OSTEOPOROSIS
     Dosage: 20 u, qd
     Route: 058
     Dates: start: 20110727, end: 20120920
  2. PREDNISONE [Concomitant]
  3. METHOTREXATE [Concomitant]
  4. OMEPRAZOLE [Concomitant]
  5. FOLIC ACID [Concomitant]
  6. ASA [Concomitant]
  7. CALCIUM [Concomitant]
  8. VITAMIN D [Concomitant]
  9. ROPINIROLE [Concomitant]
  10. PRAVASTATIN [Concomitant]
  11. ALBUTEROL [Concomitant]
     Route: 055
  12. TRAMADOL [Concomitant]
  13. AMIODARONE [Concomitant]
  14. BENAZEPRIL [Concomitant]
  15. METOPROLOL [Concomitant]

REACTIONS (1)
  - Myocardial infarction [Fatal]
